FAERS Safety Report 4347076-8 (Version None)
Quarter: 2004Q2

REPORT INFORMATION
  Report Type: 
  Country: None (occurrence: None)
  Receive Date: 20040426
  Receipt Date: 20040325
  Transmission Date: 20050107
  Serious: Yes (Other)
  Sender: FDA-Public Use
  Company Number: JP-GLAXOSMITHKLINE-B0328572A

PATIENT
  Age: 89 Year
  Sex: Female
  Weight: 40 kg

DRUGS (11)
  1. PAXIL [Suspect]
     Indication: DEPRESSION
     Dosage: 10MG PER DAY
     Route: 048
     Dates: start: 20040227, end: 20040319
  2. SERENAL [Suspect]
     Indication: ANXIETY
     Dosage: 2TAB PER DAY
     Route: 048
     Dates: start: 20040224
  3. BROTIZOLAM [Suspect]
     Indication: INSOMNIA
     Dosage: 1U PER DAY
     Route: 048
     Dates: start: 20040228
  4. ATARAX [Concomitant]
     Dosage: 2CAP PER DAY
     Route: 048
  5. NAUZELIN [Concomitant]
     Dosage: 1TAB PER DAY
     Route: 048
  6. MAGLAX [Concomitant]
     Dosage: 6TAB PER DAY
     Route: 048
  7. FEXOFENADINE HYDROCHLORIDE [Concomitant]
     Route: 048
     Dates: start: 20040217, end: 20040311
  8. PROPIVERINE HYDROCHLORIDE [Concomitant]
     Route: 048
     Dates: start: 20031226, end: 20040301
  9. LORNOXICAM [Concomitant]
     Route: 048
     Dates: start: 20040228, end: 20040306
  10. SERRAPEPTASE [Concomitant]
     Route: 048
     Dates: start: 20040228, end: 20040306
  11. REBAMIPIDE [Concomitant]
     Route: 048
     Dates: start: 20040228, end: 20040306

REACTIONS (3)
  - CONDITION AGGRAVATED [None]
  - CYANOSIS [None]
  - RAYNAUD'S PHENOMENON [None]
